FAERS Safety Report 6453682-7 (Version None)
Quarter: 2009Q4

REPORT INFORMATION
  Report Type: 
  Country: None (occurrence: None)
  Receive Date: 20091124
  Receipt Date: 20091118
  Transmission Date: 20100525
  Serious: Yes (Death)
  Sender: FDA-Public Use
  Company Number: PHHY2009IN50332

PATIENT
  Age: 14 Year
  Sex: Male

DRUGS (1)
  1. ASUNRA [Suspect]
     Dosage: 100-400 MG
     Route: 048

REACTIONS (1)
  - CEREBRAL THROMBOSIS [None]
